FAERS Safety Report 23180845 (Version 1)
Quarter: 2023Q4

REPORT INFORMATION
  Report Type: Spontaneous
  Country: US (occurrence: US)
  Receive Date: 20231114
  Receipt Date: 20231114
  Transmission Date: 20240109
  Serious: No
  Sender: FDA-Public Use
  Company Number: US-BAYER-2023A161225

PATIENT
  Age: 75 Year
  Sex: Female

DRUGS (7)
  1. MIRALAX [Suspect]
     Active Substance: POLYETHYLENE GLYCOL 3350
     Indication: Prophylaxis
     Dosage: 1 DOSE X 1 TIME IN A DAY
     Route: 048
  2. LATUDA [Concomitant]
     Active Substance: LURASIDONE HYDROCHLORIDE
     Indication: Prophylaxis
     Dosage: 20MG X 1 TIME IN A DAY
     Route: 048
  3. MYRBETRIQ [Concomitant]
     Active Substance: MIRABEGRON
     Indication: Prophylaxis
     Dosage: 50MG X 1 TIME IN A DAY
     Route: 048
  4. LORAZEPAM [Concomitant]
     Active Substance: LORAZEPAM
     Indication: Prophylaxis
     Dosage: 81MG X 1 TIME IN A DAY
     Route: 048
  5. ATORVASTATIN [Concomitant]
     Active Substance: ATORVASTATIN
     Indication: Prophylaxis
     Dosage: 80MG X 1 TIME IN A DAY
  6. INGREZZA [Concomitant]
     Active Substance: VALBENAZINE
     Indication: Prophylaxis
     Dosage: 60MG X 1 TIME IN A DAY
     Route: 048
  7. ASPIRIN [Concomitant]
     Active Substance: ASPIRIN
     Indication: Prophylaxis
     Dosage: 81MG X 1 TIME IN A DAY
     Route: 048

REACTIONS (3)
  - Swelling face [Recovering/Resolving]
  - Facial pain [Recovering/Resolving]
  - Breast pain [Recovering/Resolving]
